FAERS Safety Report 11113609 (Version 1)
Quarter: 2015Q2

REPORT INFORMATION
  Report Type: Report from Study
  Country: BE (occurrence: BE)
  Receive Date: 20150514
  Receipt Date: 20150514
  Transmission Date: 20150821
  Serious: Yes (Death)
  Sender: FDA-Public Use
  Company Number: BE-ABBVIE-14P-013-1325584-00

PATIENT
  Sex: Female

DRUGS (4)
  1. DUODOPA [Suspect]
     Active Substance: CARBIDOPA\LEVODOPA
     Dosage: MD = 3ML, CD = 2.6ML/H FOR 16HRS AND ED = 1ML
     Route: 050
     Dates: start: 20090605, end: 20090608
  2. DUODOPA [Suspect]
     Active Substance: CARBIDOPA\LEVODOPA
     Dosage: DOSAGE CONTINUOUSLY MONITORED AND ADJUSTED
     Route: 050
     Dates: start: 20090608, end: 20140204
  3. DUODOPA [Suspect]
     Active Substance: CARBIDOPA\LEVODOPA
     Dosage: MD = 4.5ML, CD = 3.1ML/H FOR 16HRS AND ED = 1ML
     Route: 050
     Dates: start: 20140204
  4. DUODOPA [Suspect]
     Active Substance: CARBIDOPA\LEVODOPA
     Indication: PARKINSON^S DISEASE
     Route: 050
     Dates: start: 20090602, end: 20090605

REACTIONS (3)
  - Death [Fatal]
  - General physical health deterioration [Unknown]
  - Confusional state [Unknown]
